FAERS Safety Report 7506432-7 (Version None)
Quarter: 2011Q2

REPORT INFORMATION
  Report Type: 
  Country: None (occurrence: None)
  Receive Date: 20110526
  Receipt Date: 20110511
  Transmission Date: 20111010
  Serious: Yes (Other)
  Sender: FDA-Public Use
  Company Number: US-BAYER-201041829NA

PATIENT
  Age: 18 Year
  Sex: Female
  Weight: 86.168 kg

DRUGS (6)
  1. YAZ [Suspect]
     Indication: CONTRACEPTION
     Dosage: UNK UNK, QD
     Route: 048
     Dates: start: 20081001, end: 20081101
  2. FERROUS SULFATE TAB [Concomitant]
     Dosage: 325 MG, UNK
  3. CITALOPRAM HYDROBROMIDE [Concomitant]
     Dosage: 20 MG, UNK
  4. DARVOCET-N 50 [Concomitant]
  5. AMBIEN [Concomitant]
     Indication: SLEEP DISORDER THERAPY
     Dosage: 10 MG, UNK
     Dates: start: 20060926, end: 20080928
  6. MULTI-VITAMIN [Concomitant]

REACTIONS (3)
  - CHOLECYSTITIS [None]
  - PAIN [None]
  - CHOLECYSTECTOMY [None]
